FAERS Safety Report 17673523 (Version 4)
Quarter: 2020Q2

REPORT INFORMATION
  Report Type: Report from Study
  Country: EG (occurrence: EG)
  Receive Date: 20200415
  Receipt Date: 20200618
  Transmission Date: 20200713
  Serious: Yes (Other)
  Sender: FDA-Public Use
  Company Number: EG-REGENERON PHARMACEUTICALS, INC.-2020-31712

PATIENT

DRUGS (4)
  1. EYLEA [Suspect]
     Active Substance: AFLIBERCEPT
     Indication: MACULAR OEDEMA
     Dosage: TREATMENT OF LEFT EYE - 1ST INJECTION
     Route: 031
     Dates: start: 20190929
  2. INSULIN [Concomitant]
     Active Substance: INSULIN NOS
     Indication: DIABETES MELLITUS
     Dosage: 30 IU, QD
     Dates: start: 2007
  3. LUCENTIS [Concomitant]
     Active Substance: RANIBIZUMAB
     Indication: PRODUCT USED FOR UNKNOWN INDICATION
     Dosage: RIGHT EYE
     Dates: start: 20191017, end: 20191017
  4. LUCENTIS [Concomitant]
     Active Substance: RANIBIZUMAB
     Dosage: LEFT EYE
     Dates: start: 20200507, end: 20200507

REACTIONS (6)
  - Visual impairment [Not Recovered/Not Resolved]
  - Spinal pain [Recovering/Resolving]
  - Vision blurred [Unknown]
  - Vitrectomy [Recovering/Resolving]
  - Cataract [Recovering/Resolving]
  - Ocular hyperaemia [Recovered/Resolved]

NARRATIVE: CASE EVENT DATE: 20191020
